FAERS Safety Report 11457382 (Version 1)
Quarter: 2015Q3

REPORT INFORMATION
  Report Type: Report from Study
  Country: CL (occurrence: CL)
  Receive Date: 20150904
  Receipt Date: 20150904
  Transmission Date: 20151125
  Serious: Yes (Other)
  Sender: FDA-Public Use
  Company Number: CL-ROCHE-1629812

PATIENT
  Age: 66 Year
  Sex: Male
  Weight: 68 kg

DRUGS (2)
  1. XELODA [Suspect]
     Active Substance: CAPECITABINE
     Indication: GASTRIC CANCER
     Dosage: 14 DAYS PER CYCLE
     Route: 048
     Dates: start: 20150714
  2. ENALAPRIL [Concomitant]
     Active Substance: ENALAPRIL
     Indication: HYPERTENSION
     Route: 048
     Dates: start: 2000

REACTIONS (5)
  - Immune system disorder [Recovered/Resolved]
  - Hiccups [Recovered/Resolved]
  - Dry mouth [Not Recovered/Not Resolved]
  - Constipation [Recovered/Resolved]
  - Tooth deposit [Not Recovered/Not Resolved]
